FAERS Safety Report 7403732-6 (Version None)
Quarter: 2011Q2

REPORT INFORMATION
  Report Type: 
  Country: None (occurrence: None)
  Receive Date: 20110408
  Receipt Date: 20110315
  Transmission Date: 20111010
  Serious: No
  Sender: FDA-Public Use
  Company Number: US-B.I. PHARMACEUTICALS,INC./RIDGEFIELD-2011-BP-08382BP

PATIENT
  Age: 74 Year
  Sex: Male

DRUGS (3)
  1. SPIRIVA [Suspect]
     Indication: CHRONIC OBSTRUCTIVE PULMONARY DISEASE
     Dosage: 18 MCG
     Route: 055
     Dates: start: 20100101
  2. FUROSEMIDE [Concomitant]
     Indication: CARDIAC DISORDER
     Route: 048
  3. FUROSEMIDE [Concomitant]
     Indication: FLUID RETENTION

REACTIONS (4)
  - DYSPHONIA [None]
  - FLUID RETENTION [None]
  - OROPHARYNGEAL PAIN [None]
  - SUNBURN [None]
